FAERS Safety Report 18647828 (Version 2)
Quarter: 2021Q1

REPORT INFORMATION
  Report Type: Report from Study
  Country: None (occurrence: US)
  Receive Date: 20201222
  Receipt Date: 20210111
  Transmission Date: 20210419
  Serious: Yes (Hospitalization, Other)
  Sender: FDA-Public Use
  Company Number: US-ABBVIE-19K-163-2623182-00

PATIENT
  Age: 58 Year
  Sex: Male

DRUGS (4)
  1. HUMIRA [Suspect]
     Active Substance: ADALIMUMAB
     Route: 058
     Dates: start: 201810
  2. HUMIRA [Suspect]
     Active Substance: ADALIMUMAB
     Indication: PSORIATIC ARTHROPATHY
     Route: 058
     Dates: start: 2005, end: 201806
  3. METFORMIN [Concomitant]
     Active Substance: METFORMIN HYDROCHLORIDE
     Indication: BLOOD GLUCOSE INCREASED
  4. LOSARTAN. [Concomitant]
     Active Substance: LOSARTAN
     Indication: HYPERTENSION

REACTIONS (12)
  - Diabetes mellitus [Unknown]
  - Pain [Unknown]
  - Small intestinal obstruction [Recovered/Resolved]
  - Post procedural complication [Unknown]
  - Fall [Recovering/Resolving]
  - Arthralgia [Recovered/Resolved]
  - Postoperative adhesion [Recovered/Resolved]
  - Intestinal perforation [Recovered/Resolved]
  - Gastrointestinal scarring [Recovered/Resolved]
  - Pain in extremity [Unknown]
  - Colectomy [Unknown]
  - Diverticulitis [Recovered/Resolved]

NARRATIVE: CASE EVENT DATE: 2008
